FAERS Safety Report 4717339-2 (Version None)
Quarter: 2005Q3

REPORT INFORMATION
  Report Type: 
  Country: None (occurrence: None)
  Receive Date: 20050712
  Receipt Date: 20050429
  Transmission Date: 20060218
  Serious: Yes (Other)
  Sender: FDA-Public Use
  Company Number: PHEH2003US03223

PATIENT
  Age: 59 Year
  Sex: Female

DRUGS (8)
  1. GLEEVEC [Suspect]
     Indication: GASTROINTESTINAL STROMAL TUMOUR
     Dosage: SEE IMAGE
     Dates: start: 20020809
  2. . [Concomitant]
  3. ARANESP [Concomitant]
  4. ATACAND [Concomitant]
  5. ZOFRAN [Concomitant]
  6. KLOR-CON [Concomitant]
  7. NIFEREX FORTE (CYANOCOBALAMIN, FOLIC ACID, POLYSACCHARIDE-IRON COMPLEX [Concomitant]
  8. R-GENE (ARGININE HYDROCHLORIDE) [Concomitant]

REACTIONS (5)
  - ANAEMIA [None]
  - CYANOSIS [None]
  - PERIORBITAL OEDEMA [None]
  - RAYNAUD'S PHENOMENON [None]
  - STOMATITIS [None]
